FAERS Safety Report 7532418-2 (Version None)
Quarter: 2011Q2

REPORT INFORMATION
  Report Type: 
  Country: None (occurrence: None)
  Receive Date: 20110608
  Receipt Date: 20110103
  Transmission Date: 20111010
  Serious: Yes (Hospitalization)
  Sender: FDA-Public Use
  Company Number: US-PFIZER INC-2011000265

PATIENT
  Age: 82 Year
  Sex: Male
  Weight: 78 kg

DRUGS (3)
  1. CLADRIBINE [Suspect]
     Dosage: 2.8 MG
     Route: 065
     Dates: start: 20101227, end: 20101227
  2. RITUXIMAB [Suspect]
     Dosage: 705 MG, UNK
     Route: 065
     Dates: start: 20101227, end: 20101227
  3. TEMSIROLIMUS [Suspect]
     Dosage: 25 MG
     Route: 065
     Dates: start: 20101227, end: 20101227

REACTIONS (3)
  - VOMITING [None]
  - UPPER GASTROINTESTINAL HAEMORRHAGE [None]
  - NAUSEA [None]
